FAERS Safety Report 9869067 (Version 2)
Quarter: 2014Q1

REPORT INFORMATION
  Report Type: Spontaneous
  Country: US (occurrence: US)
  Receive Date: 20140205
  Receipt Date: 20140226
  Transmission Date: 20141002
  Serious: No
  Sender: FDA-Public Use
  Company Number: US-BIOGENIDEC-2014BI008094

PATIENT
  Age: 35 Year
  Sex: Female

DRUGS (2)
  1. TYSABRI [Suspect]
     Indication: MULTIPLE SCLEROSIS
     Route: 042
     Dates: start: 20111229, end: 20120801
  2. TYSABRI [Suspect]
     Indication: MULTIPLE SCLEROSIS
     Route: 042
     Dates: start: 20140212

REACTIONS (25)
  - Tremor [Unknown]
  - Insomnia [Unknown]
  - Tandem gait test abnormal [Unknown]
  - Night sweats [Unknown]
  - Weight increased [Unknown]
  - Ataxia [Unknown]
  - Pain [Unknown]
  - Paraesthesia [Unknown]
  - Vertigo [Unknown]
  - Temperature intolerance [Unknown]
  - Seasonal allergy [Unknown]
  - Anxiety [Unknown]
  - Band sensation [Unknown]
  - Chills [Unknown]
  - Arthralgia [Unknown]
  - Dizziness [Unknown]
  - Fatigue [Not Recovered/Not Resolved]
  - Headache [Unknown]
  - Asthenia [Unknown]
  - Hemiparesis [Unknown]
  - Balance disorder [Unknown]
  - Coordination abnormal [Not Recovered/Not Resolved]
  - Memory impairment [Not Recovered/Not Resolved]
  - Multiple sclerosis relapse [Unknown]
  - Drug effect decreased [Unknown]
